FAERS Safety Report 18363693 (Version 1)
Quarter: 2020Q4

REPORT INFORMATION
  Report Type: Spontaneous
  Country: DE (occurrence: DE)
  Receive Date: 20201009
  Receipt Date: 20201009
  Transmission Date: 20210114
  Serious: Yes (Hospitalization)
  Sender: FDA-Public Use
  Company Number: DE-TEVA-2020-DE-1836012

PATIENT
  Age: 80 Year
  Sex: Female

DRUGS (8)
  1. AMITRIPTYLINE [Concomitant]
     Active Substance: AMITRIPTYLINE
     Dosage: 40 MG, 0-0-0-20,
     Route: 048
  2. LETROZOLE. [Suspect]
     Active Substance: LETROZOLE
     Dosage: 2.5 MILLIGRAM DAILY; 0-1-0-0,
     Route: 048
  3. TILIDINE/NALOXONE [Concomitant]
     Active Substance: NALOXONE HYDROCHLORIDE\TILIDINE HYDROCHLORIDE
     Dosage: 3 DOSAGE FORMS DAILY; 4|50 MG, 1-1-1-0,
     Route: 048
  4. PREGABALIN. [Concomitant]
     Active Substance: PREGABALIN
     Dosage: 150 MILLIGRAM DAILY; 75 MG, 1-0-1-0,
     Route: 048
  5. IRBESARTAN. [Concomitant]
     Active Substance: IRBESARTAN
     Dosage: .5 DOSAGE FORMS DAILY; 150 MG, 0.5-0-0-0,
     Route: 048
  6. LORAZEPAM. [Concomitant]
     Active Substance: LORAZEPAM
     Dosage: .5 MILLIGRAM DAILY; 0-0-0-1,
     Route: 048
  7. PANTOPRAZOL [Concomitant]
     Active Substance: PANTOPRAZOLE SODIUM
     Dosage: 40 MILLIGRAM DAILY; 1-0-0-0,
     Route: 048
  8. METAMIZOL [Suspect]
     Active Substance: METAMIZOLE SODIUM
     Dosage: 2.5 G, 1X, AMPOULES
     Route: 042

REACTIONS (4)
  - Musculoskeletal pain [Unknown]
  - Thoracic vertebral fracture [Unknown]
  - Product administration error [Unknown]
  - Fracture [Unknown]

NARRATIVE: CASE EVENT DATE: 20200626
